FAERS Safety Report 16866066 (Version 1)
Quarter: 2019Q3

REPORT INFORMATION
  Report Type: Spontaneous
  Country: US (occurrence: US)
  Receive Date: 20190930
  Receipt Date: 20190930
  Transmission Date: 20191005
  Serious: Yes (Other)
  Sender: FDA-Public Use
  Company Number: US-ALLERGAN-1924693US

PATIENT
  Age: 55 Year
  Sex: Male

DRUGS (2)
  1. VRAYLAR [Suspect]
     Active Substance: CARIPRAZINE
     Indication: BIPOLAR DISORDER
     Dosage: 4.5 MG, QD
     Route: 048
  2. UNKNOWN NAME OF ^STIMULANT^ [Concomitant]

REACTIONS (3)
  - Seizure [Recovered/Resolved]
  - Syncope [Recovered/Resolved]
  - Eye movement disorder [Recovered/Resolved]
